FAERS Safety Report 7465469-7 (Version None)
Quarter: 2011Q2

REPORT INFORMATION
  Report Type: 
  Country: None (occurrence: None)
  Receive Date: 20110509
  Receipt Date: 20110427
  Transmission Date: 20111010
  Serious: Yes (Other)
  Sender: FDA-Public Use
  Company Number: US-ROCHE-747985

PATIENT
  Sex: Male
  Weight: 73 kg

DRUGS (2)
  1. MINOCYCLINE [Concomitant]
     Indication: ACNE
     Route: 048
     Dates: start: 19890817
  2. ACCUTANE [Suspect]
     Indication: ACNE
     Route: 048
     Dates: start: 19900522, end: 19910111

REACTIONS (8)
  - CROHN'S DISEASE [None]
  - ABDOMINAL PAIN [None]
  - DERMATITIS CONTACT [None]
  - LIP DRY [None]
  - COLITIS ULCERATIVE [None]
  - RECTAL HAEMORRHAGE [None]
  - INTESTINAL HAEMORRHAGE [None]
  - IMPETIGO [None]
